FAERS Safety Report 7653959-3 (Version None)
Quarter: 2011Q3

REPORT INFORMATION
  Report Type: 
  Country: None (occurrence: None)
  Receive Date: 20110803
  Receipt Date: 20110801
  Transmission Date: 20111222
  Serious: Yes (Other)
  Sender: FDA-Public Use
  Company Number: CA-PFIZER INC-2011094590

PATIENT
  Age: 62 Year
  Sex: Female
  Weight: 62.585 kg

DRUGS (5)
  1. CELEBREX [Suspect]
     Indication: EPICONDYLITIS
     Dosage: 400 MG
  2. MACROBID [Suspect]
     Dosage: UNK
  3. LORAZEPAM [Concomitant]
     Indication: SLEEP DISORDER
     Dosage: 1 MG, AS NEEDED
  4. CRESTOR [Concomitant]
     Dosage: UNK
  5. CELEBREX [Suspect]
     Indication: PERIARTHRITIS
     Dosage: 100-200 MG, 1X/DAY
     Dates: start: 20030101, end: 20110201

REACTIONS (6)
  - ABDOMINAL DISCOMFORT [None]
  - ALLERGY TO CHEMICALS [None]
  - DYSPEPSIA [None]
  - SKIN ULCER [None]
  - OEDEMA PERIPHERAL [None]
  - SKIN LESION [None]
